FAERS Safety Report 9078506 (Version 1)
Quarter: 2013Q1

REPORT INFORMATION
  Report Type: Spontaneous
  Country: US (occurrence: US)
  Receive Date: 20130215
  Receipt Date: 20130215
  Transmission Date: 20140127
  Serious: No
  Sender: FDA-Public Use
  Company Number: US-009507513-1302USA006222

PATIENT
  Age: 38 Year
  Sex: Male

DRUGS (2)
  1. SAPHRIS [Suspect]
     Indication: HEADACHE
     Dosage: 10 MG, QHS
     Route: 048
     Dates: start: 201010, end: 201301
  2. SAPHRIS [Suspect]
     Indication: SLEEP DISORDER

REACTIONS (2)
  - Personality change [Not Recovered/Not Resolved]
  - Loss of libido [Not Recovered/Not Resolved]
